FAERS Safety Report 17706093 (Version 5)
Quarter: 2023Q4

REPORT INFORMATION
  Report Type: Report from Study
  Country: AR (occurrence: AR)
  Receive Date: 20200424
  Receipt Date: 20231225
  Transmission Date: 20240109
  Serious: Yes (Hospitalization, Other)
  Sender: FDA-Public Use
  Company Number: NVSC2020AR110462

PATIENT
  Age: 77 Year
  Sex: Female

DRUGS (3)
  1. COSENTYX [Suspect]
     Active Substance: SECUKINUMAB
     Indication: Psoriasis
     Dosage: 300 MG, QMO
     Route: 058
     Dates: start: 20191203
  2. COSENTYX [Suspect]
     Active Substance: SECUKINUMAB
     Dosage: 300 MG, QMO
     Route: 058
     Dates: start: 202003, end: 202008
  3. COSENTYX [Suspect]
     Active Substance: SECUKINUMAB
     Dosage: UNK (STARTED AGAIN IN JAN)
     Route: 065

REACTIONS (16)
  - Gastrointestinal bacterial infection [Recovering/Resolving]
  - Urinary tract infection [Not Recovered/Not Resolved]
  - COVID-19 [Recovered/Resolved]
  - Pyrexia [Recovered/Resolved]
  - Nephrolithiasis [Unknown]
  - Cyst [Unknown]
  - Renal cyst [Unknown]
  - Fall [Unknown]
  - Renal disorder [Unknown]
  - Joint injury [Unknown]
  - Psoriasis [Recovering/Resolving]
  - Altered state of consciousness [Unknown]
  - Amnesia [Not Recovered/Not Resolved]
  - COVID-19 [Unknown]
  - Memory impairment [Unknown]
  - Confusional state [Unknown]

NARRATIVE: CASE EVENT DATE: 20200101
